FAERS Safety Report 19232083 (Version 1)
Quarter: 2021Q2

REPORT INFORMATION
  Report Type: Spontaneous
  Country: US (occurrence: US)
  Receive Date: 20210507
  Receipt Date: 20210507
  Transmission Date: 20210717
  Serious: Yes (Death, Other)
  Sender: FDA-Public Use
  Company Number: US-SA-2021SA151468

PATIENT
  Age: 66 Year
  Sex: Female

DRUGS (2)
  1. ZANTAC [Suspect]
     Active Substance: RANITIDINE HYDROCHLORIDE
     Indication: DYSPEPSIA
     Dosage: 75 MG; FREQUENCY: OTHER
     Dates: start: 200401
  2. ZANTAC [Suspect]
     Active Substance: RANITIDINE HYDROCHLORIDE
     Dosage: 150 MG; FREQUENCY: OTHER
     Dates: end: 201910

REACTIONS (5)
  - Bone cancer [Fatal]
  - Lung neoplasm malignant [Fatal]
  - Uterine cancer [Fatal]
  - Ovarian cancer stage IV [Fatal]
  - Gastric cancer [Fatal]

NARRATIVE: CASE EVENT DATE: 20190601
